FAERS Safety Report 4701140-X (Version None)
Quarter: 2005Q2

REPORT INFORMATION
  Report Type: 
  Country: None (occurrence: None)
  Receive Date: 20050624
  Receipt Date: 20050617
  Transmission Date: 20051028
  Serious: Yes (Hospitalization)
  Sender: FDA-Public Use
  Company Number: 2005CG01131

PATIENT
  Age: 81 Year
  Sex: Female

DRUGS (6)
  1. OMEPRAZOLE [Suspect]
     Dosage: 20 MG QD PO
     Route: 048
     Dates: start: 20030615, end: 20050502
  2. COVERSYL [Suspect]
     Dates: start: 20041015, end: 20050527
  3. PRAXILENE [Suspect]
     Dosage: 200 MG QD PO
     Route: 048
     Dates: start: 20030615, end: 20050502
  4. PAROXETINE HCL [Suspect]
     Dosage: 20 MG QD PO
     Route: 048
     Dates: start: 20030615, end: 20050502
  5. CACIT D3 [Suspect]
     Dosage: 500 MG + 440 IU
     Dates: start: 20030615, end: 20050502
  6. SINTROM [Concomitant]

REACTIONS (3)
  - BLOOD IMMUNOGLOBULIN E INCREASED [None]
  - EOSINOPHIL COUNT INCREASED [None]
  - PEMPHIGOID [None]
